FAERS Safety Report 6388689-1 (Version None)
Quarter: 2009Q4

REPORT INFORMATION
  Report Type: 
  Country: None (occurrence: None)
  Receive Date: 20091002
  Receipt Date: 20091002
  Transmission Date: 20100525
  Serious: No
  Sender: FDA-Public Use
  Company Number: None

PATIENT
  Age: 60 Year
  Sex: Female
  Weight: 61.6892 kg

DRUGS (1)
  1. PRIMIDONE [Suspect]
     Indication: HEAD TITUBATION
     Dosage: 50MG ONE AT BEDTIME PO
     Route: 048
     Dates: start: 20090625, end: 20090625

REACTIONS (15)
  - CONSTIPATION [None]
  - CRYING [None]
  - DIZZINESS [None]
  - DYSPHAGIA [None]
  - DYSURIA [None]
  - FEELING OF DESPAIR [None]
  - GLOSSODYNIA [None]
  - HEAD TITUBATION [None]
  - HYPERSOMNIA [None]
  - HYPOAESTHESIA [None]
  - MOVEMENT DISORDER [None]
  - NAUSEA [None]
  - PANIC REACTION [None]
  - PERIPHERAL COLDNESS [None]
  - VERTIGO [None]
